FAERS Safety Report 9096746 (Version 3)
Quarter: 2013Q2

REPORT INFORMATION
  Report Type: Spontaneous
  Country: BR (occurrence: BR)
  Receive Date: 20130211
  Receipt Date: 20130514
  Transmission Date: 20140414
  Serious: Yes (Death, Hospitalization, Other)
  Sender: FDA-Public Use
  Company Number: BR-PFIZER INC-2013051235

PATIENT
  Age: 75 Year
  Sex: Male

DRUGS (3)
  1. SUTENT [Suspect]
     Indication: RENAL CANCER METASTATIC
     Dosage: 50 MG, ONCE DAILY (A DAY), CYCLIC (CYCLE: 4 WEEKS ON AND 2 WEEKS OFF)
     Route: 048
     Dates: start: 20120905, end: 201211
  2. ATENOLOL [Concomitant]
     Dosage: 25 MG A DAY
  3. APRESOLINA [Concomitant]
     Dosage: 50 MG, 2X/DAY

REACTIONS (5)
  - Renal failure acute [Fatal]
  - Pneumonia [Fatal]
  - Disease progression [Fatal]
  - Renal cancer metastatic [Fatal]
  - Emphysematous pyelonephritis [Unknown]
